FAERS Safety Report 5634903-7 (Version None)
Quarter: 2008Q1

REPORT INFORMATION
  Report Type: 
  Country: None (occurrence: None)
  Receive Date: 20080221
  Receipt Date: 20080221
  Transmission Date: 20080703
  Serious: Yes (Hospitalization)
  Sender: FDA-Public Use
  Company Number: None

PATIENT
  Sex: Male

DRUGS (12)
  1. ERBITUX [Suspect]
     Indication: NEOPLASM MALIGNANT
     Dosage: 250MG/M2/QWK/IV
     Route: 042
     Dates: start: 20071005
  2. RADIATION [Suspect]
     Dosage: DAILY FOR 60GY TOTAL
  3. LOTREL [Concomitant]
  4. MAGNESIUM [Concomitant]
  5. OXYCODONE HCL [Concomitant]
  6. NEURONTIN [Concomitant]
  7. METHADONE HCL [Concomitant]
  8. GLUCOVANCE [Concomitant]
  9. METFORMIN HCL [Concomitant]
  10. BUSPAR [Concomitant]
  11. SEROQUEL [Concomitant]
  12. DULCOLAX [Concomitant]

REACTIONS (1)
  - DEEP VEIN THROMBOSIS [None]
